FAERS Safety Report 6295852-7 (Version None)
Quarter: 2009Q3

REPORT INFORMATION
  Report Type: 
  Country: None (occurrence: None)
  Receive Date: 20090803
  Receipt Date: 20090803
  Transmission Date: 20100115
  Serious: Yes (Other)
  Sender: FDA-Public Use
  Company Number: None

PATIENT
  Age: 53 Year
  Sex: Female
  Weight: 74.8435 kg

DRUGS (3)
  1. ZYCAM ORAL SPRAY [Suspect]
     Indication: NASOPHARYNGITIS
     Dosage: RECOMMENDED DOSE ON BOTTLE
     Dates: start: 20080706, end: 20080710
  2. ZYCAM ORAL SPRAY [Suspect]
     Indication: OROPHARYNGEAL PAIN
     Dosage: RECOMMENDED DOSE ON BOTTLE
     Dates: start: 20080706, end: 20080710
  3. ZYCAM NOSE GEL [Suspect]
     Indication: NASOPHARYNGITIS
     Dosage: RECOMMENDED DOSE ON BOTTLE
     Dates: start: 20080320, end: 20080324

REACTIONS (7)
  - HYPOGEUSIA [None]
  - NASOPHARYNGITIS [None]
  - OROPHARYNGEAL PAIN [None]
  - PYREXIA [None]
  - SALIVARY GLAND DISORDER [None]
  - TONGUE COATED [None]
  - TONGUE DRY [None]
